FAERS Safety Report 16664000 (Version 7)
Quarter: 2020Q1

REPORT INFORMATION
  Report Type: Report from Study
  Country: BR (occurrence: BR)
  Receive Date: 20190802
  Receipt Date: 20200212
  Transmission Date: 20200409
  Serious: Yes (Life-Threatening, Hospitalization)
  Sender: FDA-Public Use
  Company Number: BR-JNJFOC-20190736680

PATIENT
  Age: 63 Year
  Sex: Female
  Weight: 68.9 kg

DRUGS (1)
  1. ESKETAMINE [Suspect]
     Active Substance: ESKETAMINE
     Indication: DEPRESSION
     Dosage: MOST RECENT DOSE ON 11-JUL-2019
     Dates: start: 20170830

REACTIONS (1)
  - Cerebrovascular accident [Recovered/Resolved with Sequelae]

NARRATIVE: CASE EVENT DATE: 20190724
